FAERS Safety Report 6117836-1 (Version None)
Quarter: 2009Q1

REPORT INFORMATION
  Report Type: 
  Country: None (occurrence: None)
  Receive Date: 20090314
  Receipt Date: 20090129
  Transmission Date: 20090719
  Serious: No
  Sender: FDA-Public Use
  Company Number: US-ABBOTT-09P-163-0500956-00

PATIENT
  Age: 36 Year
  Sex: Female

DRUGS (1)
  1. HUMIRA [Suspect]
     Indication: ARTHRITIS
     Dates: start: 20090120

REACTIONS (7)
  - COLD SWEAT [None]
  - DIZZINESS [None]
  - HEADACHE [None]
  - INJECTION SITE HAEMATOMA [None]
  - NAUSEA [None]
  - PERIPHERAL COLDNESS [None]
  - PRURITUS [None]
